FAERS Safety Report 6709741-4 (Version None)
Quarter: 2010Q2

REPORT INFORMATION
  Report Type: 
  Country: None (occurrence: None)
  Receive Date: 20100504
  Receipt Date: 20100423
  Transmission Date: 20101027
  Serious: Yes (Life-Threatening)
  Sender: FDA-Public Use
  Company Number: IT-SANOFI-AVENTIS-2010SA023626

PATIENT
  Age: 61 Year
  Sex: Female

DRUGS (9)
  1. TAXOTERE [Suspect]
     Indication: BREAST CANCER
     Route: 041
     Dates: start: 20100325, end: 20100325
  2. TAXOTERE [Suspect]
     Route: 041
     Dates: start: 20100416, end: 20100416
  3. ENDOXAN [Suspect]
     Indication: BREAST CANCER
     Route: 042
     Dates: start: 20100325, end: 20100325
  4. ENDOXAN [Suspect]
     Route: 042
     Dates: start: 20100416, end: 20100416
  5. ONDANSETRON [Concomitant]
     Indication: DRUG USE FOR UNKNOWN INDICATION
     Route: 042
  6. PREDNISONE TAB [Concomitant]
     Route: 065
  7. SOLDESAM [Concomitant]
     Route: 065
  8. TRIMETON [Concomitant]
     Route: 065
  9. DELTACORTENE [Concomitant]
     Indication: DRUG USE FOR UNKNOWN INDICATION
     Route: 048
     Dates: start: 20100415, end: 20100415

REACTIONS (2)
  - CARDIAC ARREST [None]
  - LOSS OF CONSCIOUSNESS [None]
